FAERS Safety Report 4971602-9 (Version None)
Quarter: 2006Q2

REPORT INFORMATION
  Report Type: 
  Country: None (occurrence: None)
  Receive Date: 20060406
  Receipt Date: 20060323
  Transmission Date: 20061013
  Serious: Yes (Life-Threatening, Hospitalization, Other)
  Sender: FDA-Public Use
  Company Number: GB200603005936

PATIENT
  Age: 22 Year
  Sex: Male
  Weight: 71 kg

DRUGS (2)
  1. ZYPREXA [Suspect]
     Dosage: 20 MG, DAILY (1/D); ORAL
     Route: 048
     Dates: start: 20060203, end: 20060310
  2. FLUOXETINE HYDROCHLORIDE [Concomitant]

REACTIONS (1)
  - NEUTROPENIA [None]
